FAERS Safety Report 4396978-5 (Version None)
Quarter: 2004Q3

REPORT INFORMATION
  Report Type: 
  Country: None (occurrence: None)
  Receive Date: 20040714
  Receipt Date: 20040707
  Transmission Date: 20050211
  Serious: Yes (Death)
  Sender: FDA-Public Use
  Company Number: PHEH2004US07298

PATIENT
  Age: 44 Year
  Sex: Male

DRUGS (9)
  1. TEGRETOL [Suspect]
     Indication: CONVULSION
     Route: 048
     Dates: start: 20020101, end: 20030101
  2. TEGRETOL [Suspect]
     Dosage: DOSE INCREASED (UNSPECIFIED)
     Route: 048
     Dates: start: 20030101
  3. WELLBUTRIN SR [Suspect]
     Indication: ALCOHOLISM
     Dosage: 150 MG, BID
     Route: 048
     Dates: start: 20030801
  4. LIBRIUM [Suspect]
     Dates: start: 20030101
  5. NORTRIPTYLINE HCL [Concomitant]
     Dates: start: 20020101
  6. VALPROATE SODIUM [Concomitant]
     Dates: start: 20020101
  7. QUETIAPINE FUMARATE [Concomitant]
  8. TRAZODONE HCL [Concomitant]
     Dates: start: 20020101
  9. CITALOPRAM HYDROBROMIDE [Concomitant]
     Dates: start: 20020101

REACTIONS (2)
  - PULMONARY THROMBOSIS [None]
  - ROAD TRAFFIC ACCIDENT [None]
